FAERS Safety Report 8564737 (Version 4)
Quarter: 2012Q4

REPORT INFORMATION
  Report Type: 
  Country: SE (occurrence: SE)
  Receive Date: 20120516
  Receipt Date: 20121109
  Transmission Date: 20130627
  Serious: Yes (Other)
  Sender: FDA-Public Use
  Company Number: SE-JNJFOC-20120511218

PATIENT
  Age: 27 None
  Sex: Male

DRUGS (6)
  1. MINOXIDIL [Suspect]
     Route: 061
  2. MINOXIDIL [Suspect]
     Indication: ALOPECIA
     Route: 061
     Dates: start: 201201, end: 20120511
  3. MINOXIDIL [Suspect]
     Indication: PRODUCT USED FOR UNKNOWN INDICATION
     Route: 061
     Dates: start: 2011
  4. PRIORIN N [Concomitant]
     Route: 065
  5. NUTRITIONAL SUPPLEMENT [Concomitant]
     Route: 065
  6. NUTRITIONAL SUPPLEMENT [Concomitant]
     Route: 065

REACTIONS (4)
  - Heart valve incompetence [Unknown]
  - Asthma [Unknown]
  - Drug ineffective [Unknown]
  - Overdose [Recovered/Resolved]
